FAERS Safety Report 20558549 (Version 3)
Quarter: 2022Q2

REPORT INFORMATION
  Report Type: Spontaneous
  Country: US (occurrence: US)
  Receive Date: 20220307
  Receipt Date: 20220518
  Transmission Date: 20220721
  Serious: No
  Sender: FDA-Public Use
  Company Number: US-BRISTOL-MYERS SQUIBB COMPANY-BMS-2022-031963

PATIENT
  Age: 69 Year
  Sex: Male

DRUGS (1)
  1. ELIQUIS [Suspect]
     Active Substance: APIXABAN
     Indication: Intracardiac thrombus
     Dosage: 5 MILLIGRAM, BID
     Route: 048
     Dates: start: 20220303

REACTIONS (1)
  - Intentional product use issue [Unknown]
